FAERS Safety Report 13881366 (Version 3)
Quarter: 2018Q3

REPORT INFORMATION
  Report Type: Spontaneous
  Country: US (occurrence: US)
  Receive Date: 20170818
  Receipt Date: 20180802
  Transmission Date: 20181010
  Serious: Yes (Hospitalization)
  Sender: FDA-Public Use
  Company Number: US-PFIZER INC-2017355181

PATIENT
  Age: 68 Year
  Sex: Female

DRUGS (1)
  1. XELJANZ [Suspect]
     Active Substance: TOFACITINIB CITRATE
     Indication: ARTHRITIS
     Dosage: 5 MG, UNK
     Dates: start: 201512

REACTIONS (7)
  - Drug dose omission [Unknown]
  - Road traffic accident [Unknown]
  - Contusion [Unknown]
  - Dry eye [Unknown]
  - Pain in extremity [Unknown]
  - Eye pruritus [Unknown]
  - Eye irritation [Unknown]
